FAERS Safety Report 12899104 (Version 2)
Quarter: 2017Q1

REPORT INFORMATION
  Report Type: Report from Study
  Country: CA (occurrence: CA)
  Receive Date: 20161101
  Receipt Date: 20170327
  Transmission Date: 20170428
  Serious: Yes (Hospitalization, Other)
  Sender: FDA-Public Use
  Company Number: CA-AMGEN-CANSL2016149017

PATIENT
  Age: 72 Year
  Sex: Female

DRUGS (5)
  1. PROLIA [Suspect]
     Active Substance: DENOSUMAB
     Indication: PRODUCT USED FOR UNKNOWN INDICATION
     Dosage: UNK
     Route: 065
     Dates: start: 20140818
  2. CALCIUM [Concomitant]
     Active Substance: CALCIUM
     Dosage: UNK
  3. VITAMIN D [Concomitant]
     Active Substance: CHOLECALCIFEROL
     Dosage: UNK
  4. SYNTHROID [Concomitant]
     Active Substance: LEVOTHYROXINE SODIUM
     Dosage: UNK
  5. PANTOLOC [Concomitant]
     Active Substance: PANTOPRAZOLE SODIUM
     Dosage: UNK

REACTIONS (23)
  - Hypertension [Unknown]
  - Feeling abnormal [Unknown]
  - Body height decreased [Unknown]
  - Adverse drug reaction [Unknown]
  - Decreased appetite [Unknown]
  - Spinal pain [Unknown]
  - Immune system disorder [Unknown]
  - Abdominal distension [Unknown]
  - Rash [Unknown]
  - Bone pain [Unknown]
  - Viral infection [Unknown]
  - Muscle spasms [Unknown]
  - Pruritus [Unknown]
  - Feeling cold [Not Recovered/Not Resolved]
  - Back pain [Unknown]
  - Pyrexia [Unknown]
  - Dysstasia [Unknown]
  - Neuralgia [Unknown]
  - Nasopharyngitis [Unknown]
  - Eczema [Unknown]
  - Weight decreased [Unknown]
  - Helicobacter infection [Unknown]
  - Vomiting [Unknown]

NARRATIVE: CASE EVENT DATE: 201608
